FAERS Safety Report 10038139 (Version 1)
Quarter: 2014Q1

REPORT INFORMATION
  Report Type: Spontaneous
  Country: GB (occurrence: GB)
  Receive Date: 20140326
  Receipt Date: 20140326
  Transmission Date: 20141002
  Serious: Yes (Hospitalization)
  Sender: FDA-Public Use
  Company Number: GB-ELI_LILLY_AND_COMPANY-GB201403004341

PATIENT
  Age: 35 Year
  Sex: Male

DRUGS (1)
  1. ZYPADHERA [Suspect]
     Indication: PRODUCT USED FOR UNKNOWN INDICATION
     Dosage: 405 MG, UNKNOWN
     Route: 030
     Dates: start: 20140312

REACTIONS (8)
  - Dizziness [Unknown]
  - Gait disturbance [Unknown]
  - Blood pressure increased [Unknown]
  - Tachycardia [Unknown]
  - Somnolence [Unknown]
  - Depressed level of consciousness [Unknown]
  - Disorientation [Unknown]
  - Delirium [Unknown]
